FAERS Safety Report 8334077 (Version 2)
Quarter: 2012Q4

REPORT INFORMATION
  Report Type: Report from Study
  Country: FR (occurrence: FR)
  Receive Date: 20120112
  Receipt Date: 20121115
  Transmission Date: 20130627
  Serious: Yes (Hospitalization)
  Sender: FDA-Public Use
  Company Number: FR-ROCHE-1029245

PATIENT
  Age: 35 Year
  Sex: Male

DRUGS (11)
  1. SOMATROPIN [Suspect]
     Indication: GROWTH HORMONE DEFICIENCY
     Route: 058
     Dates: start: 20080908, end: 201005
  2. SOMATROPIN [Suspect]
     Route: 058
     Dates: start: 20110720
  3. LEVOTHYROX [Concomitant]
     Route: 065
  4. ANDROTARDYL [Concomitant]
     Route: 065
  5. HYDROCORTISONE [Concomitant]
  6. AMAREL [Concomitant]
     Indication: DIABETES MELLITUS
     Route: 065
  7. JANUMET [Concomitant]
     Indication: DIABETES MELLITUS
  8. MINIRIN [Concomitant]
  9. METFORMIN [Concomitant]
     Indication: DIABETES MELLITUS
     Route: 048
  10. STAGID [Concomitant]
     Indication: DIABETES MELLITUS
  11. JANUVIA [Concomitant]
     Indication: DIABETES MELLITUS
     Route: 048

REACTIONS (1)
  - Craniopharyngioma [Recovered/Resolved]
